FAERS Safety Report 7279044-0 (Version None)
Quarter: 2011Q1

REPORT INFORMATION
  Report Type: 
  Country: None (occurrence: None)
  Receive Date: 20110207
  Receipt Date: 20110129
  Transmission Date: 20110831
  Serious: Yes (Hospitalization)
  Sender: FDA-Public Use
  Company Number: PHHY2011CO07672

PATIENT
  Sex: Male

DRUGS (2)
  1. LEPONEX [Suspect]
     Dosage: 100 MG, UNK
  2. LOPRESSOR [Suspect]
     Dosage: 100 MG, UNK

REACTIONS (4)
  - DIZZINESS [None]
  - DRUG DISPENSING ERROR [None]
  - GENERAL PHYSICAL CONDITION ABNORMAL [None]
  - WRONG DRUG ADMINISTERED [None]
